FAERS Safety Report 4363740-9 (Version None)
Quarter: 2004Q2

REPORT INFORMATION
  Report Type: 
  Country: None (occurrence: None)
  Receive Date: 20040517
  Receipt Date: 20040415
  Transmission Date: 20050107
  Serious: No
  Sender: FDA-Public Use
  Company Number: S04-USA-02132-01

PATIENT
  Age: 81 Year
  Sex: Male

DRUGS (5)
  1. NAMENDA [Suspect]
     Indication: DEMENTIA ALZHEIMER'S TYPE
     Dosage: 5 MG QD PO
     Route: 048
     Dates: start: 20040411
  2. ALDACTONE [Concomitant]
  3. PRILOSEC [Concomitant]
  4. SOTALOL HCL [Concomitant]
  5. ZOCOR [Concomitant]

REACTIONS (1)
  - VISION BLURRED [None]
